FAERS Safety Report 15213151 (Version 2)
Quarter: 2018Q4

REPORT INFORMATION
  Report Type: Spontaneous
  Country: US (occurrence: US)
  Receive Date: 20180730
  Receipt Date: 20181018
  Transmission Date: 20190204
  Serious: No
  Sender: FDA-Public Use
  Company Number: US-PFIZER INC-2018302068

PATIENT
  Age: 92 Year
  Sex: Female

DRUGS (1)
  1. FLECTOR [Suspect]
     Active Substance: DICLOFENAC EPOLAMINE
     Dosage: UNK

REACTIONS (5)
  - Pain [Unknown]
  - Application site warmth [Unknown]
  - Drug ineffective [Unknown]
  - Application site pain [Unknown]
  - Malaise [Unknown]
